FAERS Safety Report 16926976 (Version 1)
Quarter: 2019Q4

REPORT INFORMATION
  Report Type: Spontaneous
  Country: JP (occurrence: JP)
  Receive Date: 20191016
  Receipt Date: 20191016
  Transmission Date: 20200122
  Serious: Yes (Hospitalization)
  Sender: FDA-Public Use
  Company Number: JP-JNJFOC-20191022773

PATIENT
  Age: 56 Year

DRUGS (8)
  1. REMICADE [Suspect]
     Active Substance: INFLIXIMAB
     Route: 042
     Dates: start: 201703, end: 201703
  2. SHIOSOL [Concomitant]
     Active Substance: GOLD SODIUM THIOMALATE
     Dosage: UNK
     Route: 065
  3. REMICADE [Suspect]
     Active Substance: INFLIXIMAB
     Route: 042
     Dates: start: 201312
  4. REMICADE [Suspect]
     Active Substance: INFLIXIMAB
     Route: 042
     Dates: start: 201001
  5. REMICADE [Suspect]
     Active Substance: INFLIXIMAB
     Indication: RHEUMATOID ARTHRITIS
     Route: 042
     Dates: start: 201001
  6. REMICADE [Suspect]
     Active Substance: INFLIXIMAB
     Route: 042
     Dates: start: 201401
  7. METOLATE [Suspect]
     Active Substance: METHOTREXATE
     Indication: RHEUMATOID ARTHRITIS
     Dosage: UNK
     Route: 048
     Dates: end: 201703
  8. FOLIAMIN [Concomitant]
     Active Substance: FOLIC ACID
     Dosage: UNK
     Route: 048

REACTIONS (1)
  - Mean cell volume increased [Unknown]

NARRATIVE: CASE EVENT DATE: 201703
